FAERS Safety Report 21172358 (Version 1)
Quarter: 2022Q3

REPORT INFORMATION
  Report Type: Spontaneous
  Country: US (occurrence: None)
  Receive Date: 20220803
  Receipt Date: 20220803
  Transmission Date: 20221026
  Serious: Yes (Hospitalization)
  Sender: FDA-Public Use
  Company Number: None

PATIENT
  Age: 43 Year
  Sex: Male
  Weight: 71.1 kg

DRUGS (4)
  1. CITROMA [Suspect]
     Active Substance: MAGNESIUM CITRATE
     Dosage: OTHER QUANTITY : 10 OUNCE(S);?FREQUENCY : DAILY;?
     Route: 048
     Dates: start: 20220424, end: 20220424
  2. ZYRTEC [Concomitant]
     Active Substance: CETIRIZINE HYDROCHLORIDE
  3. FLONASE [Concomitant]
     Active Substance: FLUTICASONE PROPIONATE
  4. MONTELUKAST [Concomitant]
     Active Substance: MONTELUKAST SODIUM

REACTIONS (2)
  - Pericarditis [None]
  - Near death experience [None]

NARRATIVE: CASE EVENT DATE: 20220424
